FAERS Safety Report 8090626-9 (Version None)
Quarter: 2012Q1

REPORT INFORMATION
  Report Type: 
  Country: None (occurrence: None)
  Receive Date: 20120129
  Receipt Date: 20111121
  Transmission Date: 20120608
  Serious: No
  Sender: FDA-Public Use
  Company Number: US-ABBOTT-11P-163-0876408-00

PATIENT
  Age: 73 Year
  Sex: Male

DRUGS (8)
  1. UNKNOWN CREAM [Concomitant]
     Indication: ROSACEA
     Dosage: OCCASIONALLY
  2. LEVOXYL [Concomitant]
     Indication: THYROID DISORDER
     Route: 048
  3. METOPROLOL TARTRATE [Concomitant]
     Indication: HYPERTENSION
     Dates: start: 20100601
  4. PENTASA [Concomitant]
     Indication: CROHN'S DISEASE
     Route: 048
     Dates: start: 20100101
  5. TESTOSTERONE CYPIONATE [Concomitant]
     Indication: ANDROGEN DEFICIENCY
     Route: 030
  6. LIPITOR [Concomitant]
     Indication: BLOOD CHOLESTEROL INCREASED
     Route: 048
     Dates: start: 20100601
  7. HUMIRA [Suspect]
     Indication: CROHN'S DISEASE
     Dates: start: 20110928
  8. PLAVIX [Concomitant]
     Indication: COAGULOPATHY
     Route: 048
     Dates: start: 20100601

REACTIONS (3)
  - OCULAR HYPERAEMIA [None]
  - FOREIGN BODY SENSATION IN EYES [None]
  - ERYTHEMA OF EYELID [None]
